FAERS Safety Report 11508181 (Version 1)
Quarter: 2015Q3

REPORT INFORMATION
  Report Type: Spontaneous
  Country: US (occurrence: US)
  Receive Date: 20150903
  Receipt Date: 20150903
  Transmission Date: 20151125
  Serious: No
  Sender: FDA-Public Use
  Company Number: US-ELI_LILLY_AND_COMPANY-US200911005413

PATIENT
  Age: 81 Year
  Sex: Female

DRUGS (1)
  1. HUMALOG [Suspect]
     Active Substance: INSULIN LISPRO
     Dosage: 8 U, 3/D
     Dates: start: 2006

REACTIONS (6)
  - Spinal cord injury [Recovering/Resolving]
  - Incorrect dose administered [Recovered/Resolved]
  - Muscular weakness [Recovering/Resolving]
  - Asthenia [Recovered/Resolved]
  - Cataract [Not Recovered/Not Resolved]
  - Visual acuity reduced [Not Recovered/Not Resolved]

NARRATIVE: CASE EVENT DATE: 2007
